FAERS Safety Report 6430999-3 (Version None)
Quarter: 2009Q4

REPORT INFORMATION
  Report Type: 
  Country: None (occurrence: None)
  Receive Date: 20091106
  Receipt Date: 20091027
  Transmission Date: 20100525
  Serious: Yes (Hospitalization)
  Sender: FDA-Public Use
  Company Number: ES-PFIZER INC-2009289492

PATIENT
  Age: 89 Year
  Sex: Female

DRUGS (3)
  1. ALDACTONE [Suspect]
     Indication: HYPERTENSION
     Dosage: 5 MG, DAILY
     Route: 048
     Dates: start: 20010101, end: 20051005
  2. ACOVIL [Interacting]
     Indication: HYPERTENSION
     Dosage: 5 MG, DAILY
     Route: 048
     Dates: start: 20010101, end: 20051005
  3. ALLOPURINOL [Interacting]
     Indication: HYPERURICAEMIA
     Dosage: 300 MG, DAILY
     Route: 048
     Dates: start: 20010101, end: 20051005

REACTIONS (2)
  - DRUG INTERACTION [None]
  - HYPERKALAEMIA [None]
